FAERS Safety Report 5101064-2 (Version None)
Quarter: 2006Q3

REPORT INFORMATION
  Report Type: 
  Country: None (occurrence: None)
  Receive Date: 20060911
  Receipt Date: 20060601
  Transmission Date: 20061208
  Serious: Yes (Other)
  Sender: FDA-Public Use
  Company Number: PHBS2006ES08143

PATIENT
  Age: 70 Year
  Sex: Female

DRUGS (2)
  1. ZOMETA [Suspect]
     Indication: MULTIPLE MYELOMA
     Dosage: 4 MG, QMO
     Route: 065
     Dates: start: 20020801, end: 20060222
  2. PREDNISONE TAB [Concomitant]
     Dosage: 50 MG, Q48H
     Dates: start: 20020207, end: 20050519

REACTIONS (4)
  - ANAESTHESIA [None]
  - OSTEOMYELITIS [None]
  - TOOTH DISORDER [None]
  - TOOTH EXTRACTION [None]
